FAERS Safety Report 18869421 (Version 6)
Quarter: 2021Q4

REPORT INFORMATION
  Report Type: Report from Study
  Country: CO (occurrence: CO)
  Receive Date: 20210209
  Receipt Date: 20211026
  Transmission Date: 20220303
  Serious: Yes (Hospitalization, Other)
  Sender: FDA-Public Use
  Company Number: NVSC2020CO348881

PATIENT
  Age: 57 Year
  Sex: Male
  Weight: 81 kg

DRUGS (16)
  1. TAFINLAR [Suspect]
     Active Substance: DABRAFENIB MESYLATE
     Indication: Metastatic malignant melanoma
     Dosage: 300 MG, QD
     Route: 048
  2. TAFINLAR [Suspect]
     Active Substance: DABRAFENIB MESYLATE
     Indication: BRAF gene mutation
     Dosage: 150 MG (150 MG 2 TABLET IN THE MORNING AND 150 MG 2 TABLETS IN THE AFTERNOON)
     Route: 048
     Dates: start: 202010
  3. TAFINLAR [Suspect]
     Active Substance: DABRAFENIB MESYLATE
     Dosage: 75 MG, QD
     Route: 048
  4. TAFINLAR [Suspect]
     Active Substance: DABRAFENIB MESYLATE
     Dosage: 300 MG, QD
     Route: 048
  5. TAFINLAR [Suspect]
     Active Substance: DABRAFENIB MESYLATE
     Dosage: 150 MG, Q12H (150 MG 2 TABLETS IN THE MORNING AND 150 MG 2 TALETS IN THE AFTERNOON)
     Route: 048
     Dates: end: 202011
  6. TAFINLAR [Suspect]
     Active Substance: DABRAFENIB MESYLATE
     Dosage: 150 MG, Q12H (CAPSULES OF 75 MG)
     Route: 048
     Dates: start: 20210107
  7. TAFINLAR [Suspect]
     Active Substance: DABRAFENIB MESYLATE
     Dosage: 150 MG, Q12H (STOPPED IN JUN)
     Route: 048
  8. MEKINIST [Suspect]
     Active Substance: TRAMETINIB DIMETHYL SULFOXIDE
     Indication: Metastatic malignant melanoma
     Dosage: 2 MG, QD
     Route: 048
  9. MEKINIST [Suspect]
     Active Substance: TRAMETINIB DIMETHYL SULFOXIDE
     Indication: BRAF gene mutation
     Dosage: 2 MG, QD
     Route: 048
     Dates: start: 202010
  10. MEKINIST [Suspect]
     Active Substance: TRAMETINIB DIMETHYL SULFOXIDE
     Dosage: 2 MG, QD
     Route: 048
     Dates: start: 20210107
  11. MEKINIST [Suspect]
     Active Substance: TRAMETINIB DIMETHYL SULFOXIDE
     Dosage: 2 MG, QD
     Route: 048
  12. MEKINIST [Suspect]
     Active Substance: TRAMETINIB DIMETHYL SULFOXIDE
     Dosage: 2 MG, QD
     Route: 048
     Dates: end: 202011
  13. MEKINIST [Suspect]
     Active Substance: TRAMETINIB DIMETHYL SULFOXIDE
     Dosage: 2 MG, QD (STOPPED IN JUN)
     Route: 048
  14. LEVOTHYROXINE [Concomitant]
     Active Substance: LEVOTHYROXINE
     Indication: Thyroid cancer
     Dosage: 150 MG, QD
     Route: 048
     Dates: start: 20200825
  15. CALCITRIOL [Concomitant]
     Active Substance: CALCITRIOL
     Indication: Thyroid disorder
     Dosage: 0.25 UG, QD
     Route: 065
     Dates: start: 20200825
  16. CITRAGEL [Concomitant]
     Indication: Thyroid disorder
     Dosage: 1500 MG, QD
     Route: 065
     Dates: start: 20200825

REACTIONS (21)
  - Orchitis noninfective [Recovered/Resolved]
  - Prostatomegaly [Recovered/Resolved]
  - Prostatitis [Recovering/Resolving]
  - Drug intolerance [Unknown]
  - Malaise [Recovered/Resolved]
  - Chills [Unknown]
  - Illness [Unknown]
  - Pyrexia [Recovered/Resolved]
  - Pyrexia [Unknown]
  - Scrotal infection [Recovered/Resolved]
  - Recurrent cancer [Unknown]
  - Electric shock sensation [Recovering/Resolving]
  - Urinary tract infection [Unknown]
  - Aneurysm [Unknown]
  - Cerebral infarction [Unknown]
  - Neoplasm malignant [Unknown]
  - Pelvic pain [Unknown]
  - Tongue dry [Unknown]
  - Arthralgia [Unknown]
  - Liver disorder [Unknown]
  - Inappropriate schedule of product administration [Unknown]

NARRATIVE: CASE EVENT DATE: 20201101
